FAERS Safety Report 20148707 (Version 1)
Quarter: 2021Q4

REPORT INFORMATION
  Report Type: Spontaneous
  Country: DK (occurrence: DK)
  Receive Date: 20211204
  Receipt Date: 20211204
  Transmission Date: 20220303
  Serious: Yes (Disabling)
  Sender: FDA-Public Use
  Company Number: None

PATIENT
  Age: 65 Year
  Sex: Male
  Weight: 140 kg

DRUGS (13)
  1. HYRIMOZ [Suspect]
     Active Substance: ADALIMUMAB-ADAZ
     Indication: Psoriasis
     Dosage: 40 MG, Q2W
     Route: 058
     Dates: start: 20210329
  2. PINEX [Concomitant]
     Indication: Pain
     Route: 065
     Dates: start: 20200512
  3. METOCLOPRAMIDE [Concomitant]
     Active Substance: METOCLOPRAMIDE
     Indication: Nausea
     Route: 065
     Dates: start: 20210408
  4. GLIMEPIRIDE [Concomitant]
     Active Substance: GLIMEPIRIDE
     Indication: Type 2 diabetes mellitus
     Route: 065
     Dates: start: 20180111
  5. ALLOPURINOL [Concomitant]
     Active Substance: ALLOPURINOL
     Indication: Gout
     Route: 065
     Dates: start: 20140507
  6. DAPAGLIFLOZIN [Concomitant]
     Active Substance: DAPAGLIFLOZIN
     Indication: Type 2 diabetes mellitus
     Route: 065
     Dates: start: 20210305
  7. SILDENAFIL ACCORD [Concomitant]
     Indication: Erectile dysfunction
     Route: 065
     Dates: start: 20170310
  8. QUETIAPINE [Concomitant]
     Active Substance: QUETIAPINE
     Indication: Anxiety
     Route: 065
     Dates: start: 20210428
  9. PHENERGAN [Concomitant]
     Active Substance: PROMETHAZINE HYDROCHLORIDE
     Indication: Insomnia
     Route: 065
     Dates: start: 20180720
  10. CIPRALEX [Concomitant]
     Active Substance: ESCITALOPRAM OXALATE
     Indication: Depression
     Route: 065
     Dates: start: 20160816
  11. DISULFIRAM [Concomitant]
     Active Substance: DISULFIRAM
     Indication: Alcohol abuse
     Dosage: UNK
     Route: 065
     Dates: start: 20120423
  12. HJERTEMAGNYL [Concomitant]
     Indication: Anticoagulant therapy
     Dosage: UNK
     Route: 065
     Dates: start: 20120625
  13. SODIUM PICOSULFATE [Concomitant]
     Active Substance: SODIUM PICOSULFATE
     Indication: Constipation
     Dosage: UNK
     Route: 065
     Dates: start: 20210519

REACTIONS (1)
  - Cerebrovascular accident [Unknown]

NARRATIVE: CASE EVENT DATE: 20210831
